FAERS Safety Report 9843722 (Version 2)
Quarter: 2014Q1

REPORT INFORMATION
  Report Type: Spontaneous
  Country: US (occurrence: US)
  Receive Date: 20140126
  Receipt Date: 20140129
  Transmission Date: 20141002
  Serious: No
  Sender: FDA-Public Use
  Company Number: US-009507513-1401USA008801

PATIENT
  Sex: Male

DRUGS (1)
  1. NASONEX [Suspect]
     Dosage: 2 SPRAYS IN EACH NOSTRIL TWICE A DAY
     Route: 045
     Dates: start: 20131220

REACTIONS (3)
  - Overdose [Unknown]
  - Product quality control issue [Unknown]
  - No adverse event [Unknown]
